FAERS Safety Report 9289076 (Version 4)
Quarter: 2013Q4

REPORT INFORMATION
  Report Type: Report from Study
  Country: CA (occurrence: CA)
  Receive Date: 20130514
  Receipt Date: 20131121
  Transmission Date: 20140711
  Serious: Yes (Hospitalization, Other)
  Sender: FDA-Public Use
  Company Number: CA-TEVA-404875USA

PATIENT
  Age: 73 Year
  Sex: Male
  Weight: 74 kg

DRUGS (10)
  1. FOLINIC ACID [Suspect]
     Indication: COLORECTAL CANCER METASTATIC
     Dosage: Q 2 W
     Route: 042
     Dates: start: 20130214
  2. BEVACIZUMAB [Suspect]
     Indication: COLORECTAL CANCER METASTATIC
     Dosage: Q 2 W
     Route: 042
     Dates: start: 20130214
  3. FLUOROURACIL [Suspect]
     Indication: COLORECTAL CANCER METASTATIC
     Dosage: 2.2857 MG/M2 DAILY;
     Route: 040
     Dates: start: 20130214
  4. FLUOROURACIL [Suspect]
     Dosage: 122.8571 MG/M2 DAILY;
     Route: 042
     Dates: start: 20130214
  5. OXALIPLATIN [Suspect]
     Indication: COLORECTAL CANCER METASTATIC
     Dosage: 4.6429 MG/M2 DAILY;
     Route: 042
     Dates: start: 20130214
  6. CARBOLITH [Concomitant]
     Dates: start: 2003
  7. ATORVASTATIN [Concomitant]
     Dates: start: 2009
  8. COVERSYL [Concomitant]
     Dates: start: 2009
  9. SEROQUEL [Concomitant]
  10. ACETYLSALICYLIC ACID [Concomitant]

REACTIONS (3)
  - Renal failure acute [Recovered/Resolved]
  - Dehydration [Recovered/Resolved]
  - Thrombotic thrombocytopenic purpura [Unknown]
